FAERS Safety Report 8922443 (Version 4)
Quarter: 2013Q1

REPORT INFORMATION
  Report Type: Spontaneous
  Country: GB (occurrence: GB)
  Receive Date: 20121123
  Receipt Date: 20130319
  Transmission Date: 20140127
  Serious: Yes (Hospitalization, Other)
  Sender: FDA-Public Use
  Company Number: PHFR2012GB005985

PATIENT
  Age: 24 Year
  Sex: Male

DRUGS (9)
  1. CLOZARIL [Suspect]
     Indication: SCHIZOPHRENIA
     Dosage: UNK UKN, UNK
     Route: 048
     Dates: start: 20090406
  2. CLOZARIL [Suspect]
     Dosage: 625 MG
     Route: 048
  3. CLOZARIL [Suspect]
     Dosage: 650 MG DAILY
     Route: 048
  4. CLOZARIL [Suspect]
     Dosage: 350 MG, UNK
  5. ARIPIPRAZOLE [Concomitant]
     Dosage: 12.5 MG, UNK
     Route: 048
  6. ARIPIPRAZOLE [Concomitant]
     Dosage: UNK
  7. DIAZEPAM [Concomitant]
     Dosage: 10 MG, PRN
     Route: 048
  8. ZOPICLONE [Concomitant]
     Dosage: 7.5 MG, UNK
  9. SERTRALINE [Concomitant]
     Dosage: 200 MG, UNK
     Route: 048

REACTIONS (5)
  - Epilepsy [Unknown]
  - Neutrophil count increased [Recovered/Resolved]
  - White blood cell count increased [Recovering/Resolving]
  - Grand mal convulsion [Recovered/Resolved]
  - Gingival infection [Recovering/Resolving]
